FAERS Safety Report 10628080 (Version 1)
Quarter: 2014Q4

REPORT INFORMATION
  Report Type: Spontaneous
  Country: US (occurrence: US)
  Receive Date: 20141205
  Receipt Date: 20141205
  Transmission Date: 20150529
  Serious: Yes (Hospitalization)
  Sender: FDA-Public Use
  Company Number: US-BRISTOL-MYERS SQUIBB COMPANY-20943031

PATIENT
  Age: 53 Year
  Sex: Male

DRUGS (3)
  1. COUMADIN [Suspect]
     Active Substance: WARFARIN SODIUM
     Dosage: STOPDATE:30JAN14
     Route: 048
     Dates: end: 20140130
  2. ARIXTRA [Suspect]
     Active Substance: FONDAPARINUX SODIUM
     Dosage: STOPDATE:30JAN14
     Route: 058
     Dates: end: 20140130
  3. SUTENT [Suspect]
     Active Substance: SUNITINIB MALATE
     Dosage: STOPDATE:30JAN14
     Route: 048
     Dates: end: 20140130

REACTIONS (1)
  - Haemoptysis [Recovered/Resolved]

NARRATIVE: CASE EVENT DATE: 20140130
